FAERS Safety Report 25892542 (Version 1)
Quarter: 2025Q4

REPORT INFORMATION
  Report Type: Spontaneous
  Country: EU (occurrence: EU)
  Receive Date: 20251007
  Receipt Date: 20251007
  Transmission Date: 20260117
  Serious: Yes (Hospitalization)
  Sender: MYLAN
  Company Number: None

PATIENT
  Age: 46 Year
  Sex: Male

DRUGS (4)
  1. KETOPROFEN [Suspect]
     Active Substance: KETOPROFEN
     Indication: Antiinflammatory therapy
     Dosage: 1 DOSAGE FORM, 1 TOTAL
     Dates: start: 2015, end: 2015
  2. KETOPROFEN [Suspect]
     Active Substance: KETOPROFEN
     Dosage: 1 DOSAGE FORM, 1 TOTAL
     Route: 048
     Dates: start: 2015, end: 2015
  3. KETOPROFEN [Suspect]
     Active Substance: KETOPROFEN
     Dosage: 1 DOSAGE FORM, 1 TOTAL
     Route: 048
     Dates: start: 2015, end: 2015
  4. KETOPROFEN [Suspect]
     Active Substance: KETOPROFEN
     Dosage: 1 DOSAGE FORM, 1 TOTAL
     Dates: start: 2015, end: 2015

REACTIONS (4)
  - Erythema [Recovered/Resolved]
  - Face oedema [Recovered/Resolved]
  - Dyspnoea [Recovered/Resolved]
  - Asthenia [Recovered/Resolved]

NARRATIVE: CASE EVENT DATE: 20150101
